FAERS Safety Report 20319003 (Version 2)
Quarter: 2022Q1

REPORT INFORMATION
  Report Type: Spontaneous
  Country: NO (occurrence: NO)
  Receive Date: 20220110
  Receipt Date: 20220221
  Transmission Date: 20220424
  Serious: Yes (Hospitalization, Other)
  Sender: FDA-Public Use
  Company Number: NO-LUPIN PHARMACEUTICALS INC.-2021-26593

PATIENT
  Age: 3 Decade
  Sex: Female

DRUGS (2)
  1. MISOPROSTOL [Suspect]
     Active Substance: MISOPROSTOL
     Indication: Labour induction
     Dosage: 25 MICROGRAM (RECEIVED FOUR TABLETS WITH TWO HOURS APART)
     Route: 048
  2. ATOSIBAN [Suspect]
     Active Substance: ATOSIBAN
     Indication: Arrested labour
     Dosage: 6.75 MILLIGRAM
     Route: 042

REACTIONS (4)
  - Uterine rupture [Unknown]
  - Uterine hyperstimulation [Unknown]
  - Exposure during pregnancy [Unknown]
  - Off label use [Unknown]
